FAERS Safety Report 9912604 (Version 1)
Quarter: 2014Q1

REPORT INFORMATION
  Report Type: Spontaneous
  Country: US (occurrence: None)
  Receive Date: 20140218
  Receipt Date: 20140218
  Transmission Date: 20141002
  Serious: Yes (Other)
  Sender: FDA-Public Use
  Company Number: None

PATIENT
  Age: 74 Year
  Sex: Female

DRUGS (2)
  1. ARIMIDEX [Suspect]
     Route: 048
     Dates: start: 20140110, end: 20140204
  2. RADIATION [Concomitant]

REACTIONS (4)
  - Pruritus [None]
  - Asthenopia [None]
  - Malaise [None]
  - Abnormal sensation in eye [None]
